FAERS Safety Report 12595222 (Version 1)
Quarter: 2016Q3

REPORT INFORMATION
  Report Type: Spontaneous
  Country: AU (occurrence: AU)
  Receive Date: 20160726
  Receipt Date: 20160726
  Transmission Date: 20161109
  Serious: Yes (Death, Hospitalization)
  Sender: FDA-Public Use
  Company Number: AU-009507513-1510AUS007430

PATIENT
  Age: 66 Year
  Sex: Male

DRUGS (2)
  1. BCG LIVE [Suspect]
     Active Substance: BACILLUS CALMETTE-GUERIN SUBSTRAIN TICE LIVE ANTIGEN
     Indication: TRANSITIONAL CELL CARCINOMA
     Dosage: TWO COURSES OF BCG THERAPY, FOLLOWED BY TWO FURTHER COURSES OF BCG AND INTERFERON -A2B (INTRON A)
     Route: 043
  2. INTRON A [Concomitant]
     Active Substance: INTERFERON ALFA-2B
     Indication: TRANSITIONAL CELL CARCINOMA
     Dosage: TWO FURTHER COURSE

REACTIONS (4)
  - Cardiac arrest [Fatal]
  - Disseminated Bacillus Calmette-Guerin infection [Fatal]
  - Mycobacterium tuberculosis complex test positive [Fatal]
  - Granulomatous liver disease [Fatal]
